FAERS Safety Report 16831181 (Version 2)
Quarter: 2019Q3

REPORT INFORMATION
  Report Type: Spontaneous
  Country: US (occurrence: US)
  Receive Date: 20190920
  Receipt Date: 20190925
  Transmission Date: 20191005
  Serious: Yes (Hospitalization)
  Sender: FDA-Public Use
  Company Number: US-SA-2019SA261188

PATIENT
  Age: 76 Year
  Sex: Female

DRUGS (1)
  1. DUPIXENT [Suspect]
     Active Substance: DUPILUMAB
     Indication: DERMATITIS ATOPIC
     Dosage: 300 MG, QOW
     Route: 058
     Dates: start: 20190516

REACTIONS (4)
  - Dyspnoea [Recovering/Resolving]
  - Hypoacusis [Unknown]
  - Lung disorder [Unknown]
  - Bronchitis [Unknown]

NARRATIVE: CASE EVENT DATE: 2019
